FAERS Safety Report 26033778 (Version 2)
Quarter: 2025Q4

REPORT INFORMATION
  Report Type: Spontaneous
  Country: US (occurrence: US)
  Receive Date: 20251112
  Receipt Date: 20251204
  Transmission Date: 20260117
  Serious: Yes (Other)
  Sender: ROCHE
  Company Number: US-ROCHE-10000428635

PATIENT
  Sex: Female

DRUGS (3)
  1. XOLAIR [Suspect]
     Active Substance: OMALIZUMAB
     Indication: Food allergy
     Dosage: FORM STRENGTH: 75MG/0.5ML
     Route: 058
     Dates: start: 202411
  2. XOLAIR [Suspect]
     Active Substance: OMALIZUMAB
     Dosage: FORM STRENGTH: 150MG/ML
     Route: 058
     Dates: start: 202411
  3. XOLAIR [Suspect]
     Active Substance: OMALIZUMAB
     Dosage: FORM STRENGTH: 300MG/2ML
     Route: 058
     Dates: start: 202411

REACTIONS (1)
  - Anaphylactic reaction [Unknown]
